FAERS Safety Report 25167676 (Version 2)
Quarter: 2025Q2

REPORT INFORMATION
  Report Type: Spontaneous
  Country: US (occurrence: US)
  Receive Date: 20250407
  Receipt Date: 20250417
  Transmission Date: 20250717
  Serious: Yes (Life-Threatening, Hospitalization, Other)
  Sender: PFIZER
  Company Number: US-MLMSERVICE-20250326-PI457985-00147-1

PATIENT
  Age: 75 Year
  Sex: Female

DRUGS (6)
  1. FILGRASTIM [Suspect]
     Active Substance: FILGRASTIM
     Indication: Pure white cell aplasia
     Dosage: FOR A TOTAL OF 12 DOSES
  2. CYCLOSPORINE [Suspect]
     Active Substance: CYCLOSPORINE
     Indication: Pure white cell aplasia
  3. CIPROFLOXACIN [Concomitant]
     Active Substance: CIPROFLOXACIN
     Indication: Prophylaxis
  4. AMOXICILLIN [Concomitant]
     Active Substance: AMOXICILLIN
     Indication: Alpha haemolytic streptococcal infection
  5. CEFEPIME [Concomitant]
     Active Substance: CEFEPIME HYDROCHLORIDE
     Indication: Alpha haemolytic streptococcal infection
  6. VANCOMYCIN [Concomitant]
     Active Substance: VANCOMYCIN
     Indication: Alpha haemolytic streptococcal infection

REACTIONS (2)
  - Immune reconstitution inflammatory syndrome [Unknown]
  - Leukaemoid reaction [Unknown]
